FAERS Safety Report 12220045 (Version 1)
Quarter: 2016Q1

REPORT INFORMATION
  Report Type: Spontaneous
  Country: CA (occurrence: CA)
  Receive Date: 20160330
  Receipt Date: 20160330
  Transmission Date: 20160526
  Serious: Yes (Other)
  Sender: FDA-Public Use
  Company Number: CA-LEO PHARMA-240614

PATIENT
  Age: 72 Year
  Sex: Male

DRUGS (1)
  1. PICATO [Suspect]
     Active Substance: INGENOL MEBUTATE
     Indication: PRODUCT USED FOR UNKNOWN INDICATION
     Route: 061
     Dates: start: 20160305, end: 20160305

REACTIONS (7)
  - Application site erythema [Unknown]
  - Application site scab [Unknown]
  - Visual acuity reduced [Unknown]
  - Application site pain [Unknown]
  - Skin infection [Recovering/Resolving]
  - Application site vesicles [Unknown]
  - Incorrect drug administration duration [Unknown]

NARRATIVE: CASE EVENT DATE: 20160305
